FAERS Safety Report 25250212 (Version 1)
Quarter: 2025Q2

REPORT INFORMATION
  Report Type: Spontaneous
  Country: JP (occurrence: JP)
  Receive Date: 20250429
  Receipt Date: 20250429
  Transmission Date: 20250716
  Serious: Yes (Other)
  Sender: MERCK SHARP & DOHME LLC
  Company Number: JP-009507513-2280503

PATIENT
  Age: 75 Year
  Sex: Female

DRUGS (2)
  1. PEMBROLIZUMAB [Suspect]
     Active Substance: PEMBROLIZUMAB
     Indication: Bladder cancer recurrent
  2. ENFORTUMAB VEDOTIN [Suspect]
     Active Substance: ENFORTUMAB VEDOTIN
     Indication: Bladder cancer recurrent

REACTIONS (5)
  - Neuropathy peripheral [Unknown]
  - Skin disorder [Unknown]
  - Therapy partial responder [Unknown]
  - Alopecia [Unknown]
  - Taste disorder [Unknown]
